FAERS Safety Report 16666730 (Version 1)
Quarter: 2019Q3

REPORT INFORMATION
  Report Type: Spontaneous
  Country: US (occurrence: US)
  Receive Date: 20190805
  Receipt Date: 20190805
  Transmission Date: 20191004
  Serious: Yes (Other)
  Sender: FDA-Public Use
  Company Number: US-ACCORD-102602

PATIENT
  Age: 57 Year
  Sex: Female
  Weight: 75.75 kg

DRUGS (2)
  1. DOCETAXEL ACCORD [Suspect]
     Active Substance: DOCETAXEL
     Indication: OVARIAN CANCER
     Dosage: NUMBER OF CYCLES: 06
     Dates: end: 20150910
  2. CARBOPLATIN. [Suspect]
     Active Substance: CARBOPLATIN
     Indication: OVARIAN CANCER
     Dosage: NUMBER OF CYCLES: 06
     Dates: end: 20150910

REACTIONS (1)
  - Alopecia [Not Recovered/Not Resolved]

NARRATIVE: CASE EVENT DATE: 20050301
